FAERS Safety Report 6100613-5 (Version None)
Quarter: 2009Q1

REPORT INFORMATION
  Report Type: 
  Country: None (occurrence: None)
  Receive Date: 20090303
  Receipt Date: 20090220
  Transmission Date: 20090719
  Serious: Yes (Hospitalization)
  Sender: FDA-Public Use
  Company Number: JP-NOVOPROD-284446

PATIENT
  Age: 42 Year
  Sex: Male

DRUGS (1)
  1. NOVOLOG [Suspect]
     Dates: start: 20050101

REACTIONS (1)
  - NEUROPATHY PERIPHERAL [None]
